FAERS Safety Report 9049475 (Version 1)
Quarter: 2013Q1

REPORT INFORMATION
  Report Type: Spontaneous
  Country: FR (occurrence: FR)
  Receive Date: 20130205
  Receipt Date: 20130205
  Transmission Date: 20140127
  Serious: Yes (Hospitalization)
  Sender: FDA-Public Use
  Company Number: FR-GLAXOSMITHKLINE-B0862857A

PATIENT
  Age: 87 None
  Sex: Female

DRUGS (5)
  1. DEROXAT [Suspect]
     Indication: PRODUCT USED FOR UNKNOWN INDICATION
     Dosage: 20MG PER DAY
     Route: 048
     Dates: start: 201106, end: 20111009
  2. STILNOX [Concomitant]
     Route: 065
  3. CORDARONE [Concomitant]
     Route: 065
  4. TEMESTA [Concomitant]
     Route: 065
  5. EUPRESSYL [Concomitant]
     Route: 065

REACTIONS (4)
  - Hyponatraemia [Recovering/Resolving]
  - General physical health deterioration [Recovering/Resolving]
  - Asthenia [Recovering/Resolving]
  - Normochromic normocytic anaemia [Unknown]
